FAERS Safety Report 8141793-X (Version None)
Quarter: 2012Q1

REPORT INFORMATION
  Report Type: 
  Country: None (occurrence: None)
  Receive Date: 20120216
  Receipt Date: 20120208
  Transmission Date: 20120608
  Serious: Yes (Other)
  Sender: FDA-Public Use
  Company Number: GB-B.I. PHARMACEUTICALS,INC./RIDGEFIELD-2012-EU-00882GL

PATIENT
  Sex: Male

DRUGS (3)
  1. CARDIOVASCULAR MEDICATION [Concomitant]
  2. TELMISARTAN [Suspect]
     Route: 048
     Dates: end: 20111205
  3. ANTIHYPERTENSIVE [Concomitant]

REACTIONS (6)
  - COUGH [None]
  - LOWER RESPIRATORY TRACT INFECTION [None]
  - CHEST DISCOMFORT [None]
  - SYNCOPE [None]
  - SINUS DISORDER [None]
  - FALL [None]
